FAERS Safety Report 16089601 (Version 1)
Quarter: 2019Q1

REPORT INFORMATION
  Report Type: Spontaneous
  Country: FR (occurrence: FR)
  Receive Date: 20190319
  Receipt Date: 20190319
  Transmission Date: 20190418
  Serious: Yes (Hospitalization)
  Sender: FDA-Public Use
  Company Number: FR-PFIZER INC-2019110725

PATIENT
  Age: 57 Year
  Sex: Male
  Weight: 52 kg

DRUGS (10)
  1. VEPESIDE [Suspect]
     Active Substance: ETOPOSIDE
     Indication: LYMPHOMA
     Dosage: 100 MG/M2, CYCLIC (5 CYCLES IN TOTAL)
     Route: 041
     Dates: start: 20110329, end: 20110725
  2. ENDOXAN [CYCLOPHOSPHAMIDE] [Suspect]
     Active Substance: CYCLOPHOSPHAMIDE
     Indication: LYMPHOMA
     Dosage: 600 MG/M2, CYCLIC (6 CYCLES IN TOTAL)
     Route: 041
     Dates: start: 20110329, end: 20110725
  3. COVERSYL [Concomitant]
     Active Substance: PERINDOPRIL
  4. FLECTOR [DICLOFENAC SODIUM] [Concomitant]
     Active Substance: DICLOFENAC SODIUM
  5. CARDIOXANE [Suspect]
     Active Substance: DEXRAZOXANE HYDROCHLORIDE
     Dates: start: 20110418, end: 20110530
  6. TAHOR [Concomitant]
     Active Substance: ATORVASTATIN CALCIUM
  7. CELECTOL [Concomitant]
     Active Substance: CELIPROLOL HYDROCHLORIDE
  8. PLAVIX [Concomitant]
     Active Substance: CLOPIDOGREL BISULFATE
  9. DOXORUBICIN HCL [Suspect]
     Active Substance: DOXORUBICIN HYDROCHLORIDE
     Indication: LYMPHOMA
     Dosage: 25 MG/M2, CYCLIC (5 CYCLES IN TOTAL)
     Route: 041
     Dates: start: 20110329, end: 20110725
  10. MABTHERA [Suspect]
     Active Substance: RITUXIMAB
     Indication: LYMPHOMA
     Dosage: 375 MG/M2, CYCLIC (8 CYCLES IN TOTAL)
     Route: 041
     Dates: start: 20110329, end: 20110912

REACTIONS (3)
  - Lung adenocarcinoma [Not Recovered/Not Resolved]
  - Second primary malignancy [Not Recovered/Not Resolved]
  - Neoplasm progression [Not Recovered/Not Resolved]

NARRATIVE: CASE EVENT DATE: 20111129
